FAERS Safety Report 24263703 (Version 1)
Quarter: 2024Q3

REPORT INFORMATION
  Report Type: Spontaneous
  Country: IT (occurrence: IT)
  Receive Date: 20240829
  Receipt Date: 20240829
  Transmission Date: 20241017
  Serious: Yes (Death, Life-Threatening, Other)
  Sender: HIKMA
  Company Number: IT-MLMSERVICE-20240506-PI050659-00271-1

PATIENT
  Age: 7 Year
  Sex: Female

DRUGS (37)
  1. BECLOMETHASONE DIPROPIONATE [Suspect]
     Active Substance: BECLOMETHASONE DIPROPIONATE
     Indication: Graft versus host disease in gastrointestinal tract
     Dosage: 4 MILLIGRAM/KILOGRAM, QD
     Route: 065
     Dates: start: 201811
  2. BECLOMETHASONE DIPROPIONATE [Suspect]
     Active Substance: BECLOMETHASONE DIPROPIONATE
     Dosage: UNKNOWN
     Route: 065
     Dates: start: 2018, end: 2018
  3. CYCLOPHOSPHAMIDE [Suspect]
     Active Substance: CYCLOPHOSPHAMIDE
     Indication: Bone marrow conditioning regimen
     Dosage: 60 MILLIGRAM/SQ. METER, QD
     Route: 065
     Dates: start: 201804, end: 201804
  4. CYCLOPHOSPHAMIDE [Suspect]
     Active Substance: CYCLOPHOSPHAMIDE
     Indication: T-cell type acute leukaemia
     Dosage: UNKNOWN
     Route: 065
     Dates: start: 201707, end: 2017
  5. CYCLOPHOSPHAMIDE [Suspect]
     Active Substance: CYCLOPHOSPHAMIDE
     Indication: Metastases to central nervous system
  6. CYCLOSPORINE [Suspect]
     Active Substance: CYCLOSPORINE
     Indication: Prophylaxis against graft versus host disease
     Dosage: UNKNOWN
     Route: 065
     Dates: start: 2018
  7. CYTARABINE [Suspect]
     Active Substance: CYTARABINE
     Indication: Metastases to central nervous system
     Dosage: UNKNOWN
     Route: 037
     Dates: start: 201707
  8. CYTARABINE [Suspect]
     Active Substance: CYTARABINE
     Indication: Leukaemia recurrent
     Dosage: UNKNOWN
     Route: 065
     Dates: end: 2018
  9. CYTARABINE [Suspect]
     Active Substance: CYTARABINE
     Indication: T-cell type acute leukaemia
  10. DAUNORUBICIN [Suspect]
     Active Substance: DAUNORUBICIN
     Indication: Metastases to central nervous system
     Dosage: UNKNOWN
     Route: 065
     Dates: start: 201707, end: 2017
  11. DAUNORUBICIN [Suspect]
     Active Substance: DAUNORUBICIN
     Indication: T-cell type acute leukaemia
  12. DEXAMETHASONE [Suspect]
     Active Substance: DEXAMETHASONE
     Indication: Metastases to central nervous system
     Dosage: UNKNOWN
     Route: 065
     Dates: start: 201707, end: 2017
  13. DEXAMETHASONE [Suspect]
     Active Substance: DEXAMETHASONE
     Indication: T-cell type acute leukaemia
  14. FLUDARABINE [Suspect]
     Active Substance: FLUDARABINE PHOSPHATE
     Indication: Leukaemia recurrent
     Dosage: UNKNOWN
     Route: 065
     Dates: end: 2018
  15. FLUDARABINE [Suspect]
     Active Substance: FLUDARABINE PHOSPHATE
     Indication: Metastases to central nervous system
  16. FLUDARABINE [Suspect]
     Active Substance: FLUDARABINE PHOSPHATE
     Indication: T-cell type acute leukaemia
  17. METHOTREXATE [Suspect]
     Active Substance: METHOTREXATE
     Indication: Metastases to central nervous system
     Dosage: UNKNOWN
     Route: 037
     Dates: start: 201707, end: 2017
  18. METHOTREXATE [Suspect]
     Active Substance: METHOTREXATE
     Indication: Leukaemia recurrent
     Dosage: UNKNOWN
     Route: 065
  19. METHOTREXATE [Suspect]
     Active Substance: METHOTREXATE
     Indication: T-cell type acute leukaemia
     Dosage: CONSOLIDATION PHASE, BASED ON HIGH-DOSE METHOTREXATE
     Route: 037
     Dates: start: 2017
  20. METHOTREXATE [Suspect]
     Active Substance: METHOTREXATE
     Indication: Prophylaxis against graft versus host disease
     Dosage: SHORT-TERM
     Route: 065
     Dates: start: 2018
  21. METHYLPREDNISOLONE [Suspect]
     Active Substance: METHYLPREDNISOLONE
     Indication: Diarrhoea
     Dosage: 1 MILLIGRAM/KILOGRAM, WEEKLY, BOLUS OF 0.5 MG/KG OF METHYLPREDNISOLONE TWICE A WEEK
     Route: 065
     Dates: start: 201811
  22. METHYLPREDNISOLONE [Suspect]
     Active Substance: METHYLPREDNISOLONE
     Indication: Abdominal pain
  23. METHYLPREDNISOLONE [Suspect]
     Active Substance: METHYLPREDNISOLONE
     Indication: Vomiting
  24. METHYLPREDNISOLONE [Suspect]
     Active Substance: METHYLPREDNISOLONE
     Indication: Weight decreased
  25. MYCOPHENOLATE MOFETIL [Suspect]
     Active Substance: MYCOPHENOLATE MOFETIL
     Indication: Intestinal atony
     Dosage: UNKNOWN
     Route: 065
     Dates: start: 2018
  26. DOXORUBICIN HYDROCHLORIDE [Suspect]
     Active Substance: DOXORUBICIN HYDROCHLORIDE
     Indication: Leukaemia recurrent
     Dosage: UNKNOWN
     Route: 065
     Dates: end: 2018
  27. DOXORUBICIN HYDROCHLORIDE [Suspect]
     Active Substance: DOXORUBICIN HYDROCHLORIDE
     Indication: Metastases to central nervous system
  28. DOXORUBICIN HYDROCHLORIDE [Suspect]
     Active Substance: DOXORUBICIN HYDROCHLORIDE
     Indication: T-cell type acute leukaemia
  29. PREDNISONE [Suspect]
     Active Substance: PREDNISONE
     Indication: Graft versus host disease in skin
     Dosage: 1 MILLIGRAM/KILOGRAM, QD
     Route: 065
     Dates: start: 2018, end: 2018
  30. PREDNISONE [Suspect]
     Active Substance: PREDNISONE
     Dosage: 5 MILLIGRAM/KILOGRAM, QD
     Route: 065
     Dates: start: 201811
  31. PREDNISONE [Suspect]
     Active Substance: PREDNISONE
     Indication: T-cell type acute leukaemia
     Dosage: UNKNOWN
     Route: 037
     Dates: start: 201707, end: 2017
  32. PREDNISONE [Suspect]
     Active Substance: PREDNISONE
     Indication: Metastases to central nervous system
     Dosage: UNKNOWN
     Route: 065
  33. PREDNISONE [Suspect]
     Active Substance: PREDNISONE
     Indication: Leukaemia recurrent
  34. LAPINE T-LYMPHOCYTE IMMUNE GLOBULIN [Suspect]
     Active Substance: LAPINE T-LYMPHOCYTE IMMUNE GLOBULIN
     Indication: Bone marrow conditioning regimen
     Dosage: 240 MILLIGRAM/SQ. METER, QD
     Route: 065
     Dates: start: 201804, end: 201804
  35. TACROLIMUS [Suspect]
     Active Substance: TACROLIMUS
     Indication: Intestinal atony
     Dosage: UNKNOWN
     Route: 065
     Dates: start: 2018
  36. VINCRISTINE [Suspect]
     Active Substance: VINCRISTINE
     Indication: T-cell type acute leukaemia
     Dosage: UNKNOWN
     Route: 065
     Dates: start: 201707, end: 2017
  37. VINCRISTINE [Suspect]
     Active Substance: VINCRISTINE
     Indication: Metastases to central nervous system

REACTIONS (11)
  - Haemostasis [Fatal]
  - Intestinal atony [Fatal]
  - Cardiopulmonary failure [Fatal]
  - Cardiac arrest [Fatal]
  - Pneumatosis intestinalis [Fatal]
  - Pulmonary oedema [Fatal]
  - Seizure [Fatal]
  - Portal vein embolism [Fatal]
  - Trismus [Fatal]
  - Pulmonary embolism [Fatal]
  - Multiple organ dysfunction syndrome [Fatal]

NARRATIVE: CASE EVENT DATE: 20181101
